FAERS Safety Report 4303113-8 (Version None)
Quarter: 2004Q1

REPORT INFORMATION
  Report Type: 
  Country: None (occurrence: None)
  Receive Date: 20040224
  Receipt Date: 20040202
  Transmission Date: 20041129
  Serious: Yes (Hospitalization)
  Sender: FDA-Public Use
  Company Number: DE-ROCHE-357718

PATIENT
  Age: 56 Year
  Sex: Female

DRUGS (20)
  1. DACLIZUMAB [Suspect]
     Route: 042
     Dates: start: 20031104, end: 20031104
  2. DACLIZUMAB [Suspect]
     Route: 042
     Dates: end: 20031229
  3. MYCOPHENOLATE MOFETIL [Suspect]
     Route: 048
     Dates: start: 20031104, end: 20031104
  4. MYCOPHENOLATE MOFETIL [Suspect]
     Route: 048
     Dates: start: 20031105, end: 20040202
  5. RAPAMUNE [Suspect]
     Route: 048
     Dates: start: 20031104
  6. RAPAMUNE [Suspect]
     Route: 048
     Dates: start: 20031107, end: 20040202
  7. SOLU-DECORTIN [Suspect]
     Route: 065
     Dates: start: 20031104
  8. SOLU-DECORTIN [Suspect]
     Route: 065
     Dates: start: 20031105, end: 20031105
  9. DECORTIN H [Suspect]
     Route: 048
     Dates: start: 20031106
  10. DECORTIN H [Suspect]
     Route: 048
     Dates: start: 20031119
  11. DECORTIN H [Suspect]
     Route: 048
     Dates: start: 20031203
  12. DECORTIN H [Suspect]
     Route: 048
     Dates: start: 20040112
  13. AMPHO MORONAL [Concomitant]
     Dates: start: 20031105, end: 20040112
  14. CONCOR 5 [Concomitant]
     Dates: start: 20031107
  15. COTRIM [Concomitant]
     Dates: start: 20031107, end: 20040107
  16. CYMEVENE [Concomitant]
     Dates: start: 20031104, end: 20040106
  17. NORVASC [Concomitant]
     Dates: start: 20031106
  18. ROCEPHIN [Concomitant]
     Dates: start: 20031104, end: 20031106
  19. SORTIS [Concomitant]
     Dates: start: 20031110
  20. VALCYTE [Concomitant]
     Dates: start: 20040106

REACTIONS (3)
  - LEUKOPENIA [None]
  - LIP DISORDER [None]
  - NECROSIS [None]
